FAERS Safety Report 19254938 (Version 2)
Quarter: 2021Q2

REPORT INFORMATION
  Report Type: Spontaneous
  Country: IT (occurrence: IT)
  Receive Date: 20210513
  Receipt Date: 20210605
  Transmission Date: 20210717
  Serious: Yes (Hospitalization, Other)
  Sender: FDA-Public Use
  Company Number: IT-AUROBINDO-AUR-APL-2021-019495

PATIENT
  Age: 54 Year
  Sex: Male

DRUGS (3)
  1. PEMBROLIZUMAB. [Suspect]
     Active Substance: PEMBROLIZUMAB
     Indication: LUNG ADENOCARCINOMA
     Dosage: 200 MILLIGRAM, Q3W
     Route: 065
  2. CARBOPLATIN. [Suspect]
     Active Substance: CARBOPLATIN
     Indication: LUNG ADENOCARCINOMA
     Dosage: UNK 1, 3 WEEK (AUC 5)
     Route: 065
  3. PEMETREXED DISODIUM [Suspect]
     Active Substance: PEMETREXED DISODIUM
     Indication: LUNG ADENOCARCINOMA
     Dosage: 500 MILLIGRAM 1, 3 WEEK (500 MG/MQ )
     Route: 065

REACTIONS (8)
  - Arrhythmia [Unknown]
  - Chest pain [Unknown]
  - Atrial fibrillation [Unknown]
  - Pericardial effusion [Recovering/Resolving]
  - Malaise [Unknown]
  - Electrocardiogram ST segment elevation [Unknown]
  - Pericarditis [Unknown]
  - Product use issue [Unknown]
